FAERS Safety Report 14302959 (Version 1)
Quarter: 2017Q4

REPORT INFORMATION
  Report Type: Spontaneous
  Country: DE (occurrence: DE)
  Receive Date: 20171219
  Receipt Date: 20171219
  Transmission Date: 20180321
  Serious: Yes (Hospitalization)
  Sender: FDA-Public Use
  Company Number: DE-TEVA-2017-DE-833363

PATIENT
  Age: 30 Year
  Sex: Male

DRUGS (1)
  1. PREDNISOLON [Suspect]
     Active Substance: PREDNISOLONE
     Indication: URTICARIA
     Route: 065

REACTIONS (1)
  - Anaphylactic reaction [Recovered/Resolved]

NARRATIVE: CASE EVENT DATE: 201710
